FAERS Safety Report 13422115 (Version 1)
Quarter: 2017Q2

REPORT INFORMATION
  Report Type: Spontaneous
  Country: DE (occurrence: DE)
  Receive Date: 20170410
  Receipt Date: 20170410
  Transmission Date: 20170830
  Serious: Yes (Other)
  Sender: FDA-Public Use
  Company Number: DE-009507513-1704DEU000667

PATIENT
  Sex: Female

DRUGS (1)
  1. EZETROL [Suspect]
     Active Substance: EZETIMIBE
     Dosage: 10 MG, UNK
     Route: 048
     Dates: end: 20170401

REACTIONS (3)
  - Tendonitis [Unknown]
  - Myalgia [Recovering/Resolving]
  - Polyarthritis [Unknown]

NARRATIVE: CASE EVENT DATE: 20170403
